FAERS Safety Report 9167562 (Version 1)
Quarter: 2013Q1

REPORT INFORMATION
  Report Type: Spontaneous
  Country: FR (occurrence: None)
  Receive Date: 20130304
  Receipt Date: 20130304
  Transmission Date: 20140127
  Serious: Yes (Hospitalization)
  Sender: FDA-Public Use
  Company Number: 7194692

PATIENT
  Age: 46 Year
  Sex: Female

DRUGS (2)
  1. THYROZOL [Suspect]
     Route: 048
     Dates: start: 20111008, end: 20111024
  2. LEVOTHYROX [Suspect]
     Route: 048
     Dates: start: 20111023, end: 20111024

REACTIONS (3)
  - Urticaria [None]
  - Pyrexia [None]
  - Prurigo [None]
